FAERS Safety Report 24360010 (Version 1)
Quarter: 2024Q3

REPORT INFORMATION
  Report Type: Spontaneous
  Country: US (occurrence: US)
  Receive Date: 20240925
  Receipt Date: 20240925
  Transmission Date: 20241017
  Serious: No
  Sender: Harrow Health
  Company Number: US-IMP-2024000497

PATIENT
  Age: 76 Year
  Sex: Female

DRUGS (2)
  1. FRESHKOTE PRESERVATIVE FREE LUBRICANT EYE DROPS [Suspect]
     Active Substance: POLYVINYL ALCOHOL\POVIDONE
     Indication: Dry eye
     Dosage: AS NEEDED
     Route: 047
     Dates: start: 2024, end: 2024
  2. Generic Restasis [Concomitant]
     Indication: Product used for unknown indication

REACTIONS (1)
  - Eye pruritus [Recovered/Resolved]

NARRATIVE: CASE EVENT DATE: 20240101
